FAERS Safety Report 7331084-9 (Version None)
Quarter: 2011Q1

REPORT INFORMATION
  Report Type: 
  Country: None (occurrence: None)
  Receive Date: 20110304
  Receipt Date: 20110221
  Transmission Date: 20110831
  Serious: Yes (Other)
  Sender: FDA-Public Use
  Company Number: US-JNJFOC-20110208615

PATIENT
  Age: 46 Year
  Sex: Male
  Weight: 90.72 kg

DRUGS (1)
  1. PRECISE EXTRA STRENGTH PAIN RELIEVING CREAM [Suspect]
     Indication: BACK PAIN
     Route: 061

REACTIONS (4)
  - APPLICATION SITE PAIN [None]
  - APPLICATION SITE BURN [None]
  - APPLICATION SITE VESICLES [None]
  - APPLICATION SITE ERYTHEMA [None]
